FAERS Safety Report 6167984-5 (Version None)
Quarter: 2009Q2

REPORT INFORMATION
  Report Type: 
  Country: None (occurrence: None)
  Receive Date: 20090423
  Receipt Date: 20090423
  Transmission Date: 20091009
  Serious: No
  Sender: FDA-Public Use
  Company Number: None

PATIENT
  Age: 60 Year
  Sex: Female
  Weight: 67.1324 kg

DRUGS (6)
  1. TAMOXIFEN CITRATE [Suspect]
     Indication: ATTENTION DEFICIT/HYPERACTIVITY DISORDER
     Dosage: 1 ONCE A DAY
     Dates: start: 20090202, end: 20090327
  2. TAMOXIFEN CITRATE [Suspect]
     Indication: BREAST CANCER
     Dosage: 1 ONCE A DAY
     Dates: start: 20090202, end: 20090327
  3. CLONAZEPAM [Suspect]
     Indication: ANXIETY DISORDER
     Dosage: 3 CLONAZEPAM 3 TIMES A DAY
     Dates: start: 20090116, end: 20090412
  4. AMBIEN [Suspect]
  5. ADDERALL 10 [Suspect]
  6. ZOLOFT [Suspect]

REACTIONS (7)
  - CEREBRAL DISORDER [None]
  - CONFUSIONAL STATE [None]
  - DRUG INTERACTION [None]
  - FEELING ABNORMAL [None]
  - IMPAIRED WORK ABILITY [None]
  - LETHARGY [None]
  - UNEVALUABLE EVENT [None]
